FAERS Safety Report 5071594-0 (Version None)
Quarter: 2006Q3

REPORT INFORMATION
  Report Type: 
  Country: None (occurrence: None)
  Receive Date: 20060804
  Receipt Date: 20060724
  Transmission Date: 20061208
  Serious: Yes (Hospitalization)
  Sender: FDA-Public Use
  Company Number: 2006AP03422

PATIENT
  Age: 17133 Day
  Sex: Male

DRUGS (23)
  1. IRESSA [Suspect]
     Indication: HYPOPHARYNGEAL CANCER
     Dosage: CONCOMITANT PHASE
     Route: 048
     Dates: start: 20050801, end: 20050919
  2. IRESSA [Suspect]
     Dosage: MAINTENANCE PHASE
     Route: 048
     Dates: start: 20050920, end: 20060717
  3. CISPLATIN [Suspect]
     Indication: HYPOPHARYNGEAL CANCER
     Route: 042
     Dates: start: 20050808, end: 20050808
  4. CISPLATIN [Suspect]
     Route: 042
     Dates: start: 20050929, end: 20050929
  5. CISPLATIN [Suspect]
     Route: 042
     Dates: start: 20050926, end: 20050926
  6. RADIOTHERAPY [Suspect]
     Indication: HYPOPHARYNGEAL CANCER
     Dosage: 2 GY DAILY
     Dates: start: 20050808, end: 20050812
  7. RADIOTHERAPY [Suspect]
     Dosage: 2 GY DAILY
     Dates: start: 20050815, end: 20050819
  8. RADIOTHERAPY [Suspect]
     Dosage: 2 GY DAILY
     Dates: start: 20050822, end: 20050826
  9. RADIOTHERAPY [Suspect]
     Dosage: 2 GY DAILY
     Dates: start: 20050829, end: 20050831
  10. RADIOTHERAPY [Suspect]
     Dosage: 2 GY
     Dates: start: 20050902, end: 20050902
  11. RADIOTHERAPY [Suspect]
     Dosage: 2 GY DAILY
     Dates: start: 20050905, end: 20050908
  12. RADIOTHERAPY [Suspect]
     Dosage: 2 GY DAILY
     Dates: start: 20050912, end: 20050916
  13. RADIOTHERAPY [Suspect]
     Dosage: 2 GY DAILY
     Dates: start: 20050920, end: 20050924
  14. RADIOTHERAPY [Suspect]
     Dosage: 2 GY DAILY
     Dates: start: 20050926, end: 20050927
  15. DEXAMETHASONE TAB [Concomitant]
     Indication: PROPHYLAXIS OF NAUSEA AND VOMITING
     Route: 048
     Dates: start: 20050805, end: 20050812
  16. DEXAMETHASONE TAB [Concomitant]
     Route: 042
     Dates: start: 20050805, end: 20050808
  17. DEXAMETHASONE TAB [Concomitant]
     Route: 048
     Dates: start: 20050829, end: 20050905
  18. DEXAMETHASONE TAB [Concomitant]
     Route: 042
     Dates: start: 20050829, end: 20050829
  19. IBUPROFEN [Concomitant]
     Indication: PAIN
     Route: 048
     Dates: start: 20050811, end: 20050901
  20. BECLOMETHASONE DIPROPIONATE [Concomitant]
     Indication: MUCOSAL INFLAMMATION
     Route: 002
     Dates: start: 20050818, end: 20051031
  21. INDOMETHACIN [Concomitant]
     Indication: PAIN
     Route: 048
     Dates: start: 20050912, end: 20050919
  22. DICLOFENAC [Concomitant]
     Indication: PAIN
     Route: 048
     Dates: start: 20050922, end: 20051006
  23. DICLOFENAC [Concomitant]
     Route: 048
     Dates: start: 20051118, end: 20051202

REACTIONS (5)
  - GASTRIC ULCER [None]
  - GASTRITIS [None]
  - GASTROINTESTINAL CANDIDIASIS [None]
  - GASTROINTESTINAL MUCOSAL NECROSIS [None]
  - HELICOBACTER PYLORI IDENTIFICATION TEST POSITIVE [None]
